FAERS Safety Report 8134788-3 (Version None)
Quarter: 2012Q1

REPORT INFORMATION
  Report Type: 
  Country: None (occurrence: None)
  Receive Date: 20120214
  Receipt Date: 20120206
  Transmission Date: 20120608
  Serious: No
  Sender: FDA-Public Use
  Company Number: US-PFIZER INC-2012034636

PATIENT
  Sex: Female

DRUGS (3)
  1. ADDERALL 5 [Concomitant]
  2. NORGESTREL AND ETHINYL ESTRADIOL [Suspect]
     Indication: OFF LABEL USE
  3. NORGESTREL AND ETHINYL ESTRADIOL [Suspect]
     Indication: MIGRAINE

REACTIONS (1)
  - HYPOAESTHESIA [None]
